FAERS Safety Report 4330727-1 (Version None)
Quarter: 2004Q2

REPORT INFORMATION
  Report Type: 
  Country: None (occurrence: None)
  Receive Date: 20040401
  Receipt Date: 20040401
  Transmission Date: 20050107
  Serious: Yes (Hospitalization)
  Sender: FDA-Public Use
  Company Number: None

PATIENT
  Age: 29 Year
  Sex: Female

DRUGS (1)
  1. DAPSONE [Suspect]
     Indication: SKIN DISORDER
     Dosage: PO, X 2 DOSES
     Route: 048

REACTIONS (5)
  - ACQUIRED METHAEMOGLOBINAEMIA [None]
  - CYANOSIS [None]
  - DRUG INTERACTION [None]
  - HYPOXIA [None]
  - RESPIRATORY DISTRESS [None]
